FAERS Safety Report 6266010-7 (Version None)
Quarter: 2009Q3

REPORT INFORMATION
  Report Type: 
  Country: None (occurrence: None)
  Receive Date: 20090709
  Receipt Date: 20090709
  Transmission Date: 20100115
  Serious: No
  Sender: FDA-Public Use
  Company Number: None

PATIENT
  Age: 64 Year
  Sex: Female
  Weight: 49.8957 kg

DRUGS (6)
  1. ADDERALL XR 30 [Suspect]
     Indication: SEDATION
     Dosage: 2 CAPSULES EVERY MORNING PO
     Route: 048
     Dates: start: 20050501, end: 20080601
  2. FENTANYL-100 [Concomitant]
  3. DURAGESID PATCH [Concomitant]
  4. CELEXA [Concomitant]
  5. BUSBAR [Concomitant]
  6. CLONOPIN [Concomitant]

REACTIONS (10)
  - ABNORMAL BEHAVIOUR [None]
  - DRUG INTOLERANCE [None]
  - ECONOMIC PROBLEM [None]
  - HALLUCINATION [None]
  - HALLUCINATION, AUDITORY [None]
  - HYPERSENSITIVITY [None]
  - MANIA [None]
  - PSYCHOTIC DISORDER [None]
  - WEIGHT INCREASED [None]
  - WITHDRAWAL SYNDROME [None]
